FAERS Safety Report 19183850 (Version 1)
Quarter: 2021Q2

REPORT INFORMATION
  Report Type: Spontaneous
  Country: US (occurrence: US)
  Receive Date: 20210426
  Receipt Date: 20210426
  Transmission Date: 20210717
  Serious: Yes (Hospitalization, Other)
  Sender: FDA-Public Use
  Company Number: None

PATIENT
  Age: 59 Year
  Sex: Female
  Weight: 98.2 kg

DRUGS (1)
  1. IRON DEXTRAN COMPLEX [Suspect]
     Active Substance: IRON DEXTRAN
     Indication: IRON DEFICIENCY ANAEMIA
     Dosage: ?          OTHER FREQUENCY:ONCE;?
     Route: 042
     Dates: start: 20210416, end: 20210416

REACTIONS (8)
  - Back pain [None]
  - Infusion related reaction [None]
  - Chest discomfort [None]
  - Muscle spasms [None]
  - Nausea [None]
  - Paraesthesia oral [None]
  - Blood pressure decreased [None]
  - Dyspnoea [None]

NARRATIVE: CASE EVENT DATE: 20210416
